FAERS Safety Report 20882627 (Version 2)
Quarter: 2022Q2

REPORT INFORMATION
  Report Type: Report from Study
  Country: US (occurrence: US)
  Receive Date: 20220527
  Receipt Date: 20220607
  Transmission Date: 20220720
  Serious: Yes (Death, Hospitalization, Other)
  Sender: FDA-Public Use
  Company Number: US-GILEAD-2022-0576433

PATIENT
  Age: 18 Year
  Sex: Male
  Weight: 64.9 kg

DRUGS (5)
  1. BREXUCABTAGENE AUTOLEUCEL [Suspect]
     Active Substance: BREXUCABTAGENE AUTOLEUCEL
     Indication: Lymphoma
     Dosage: 40 ML, ONCE
     Route: 065
     Dates: start: 20220419, end: 20220419
  2. FLUDARABINE [Suspect]
     Active Substance: FLUDARABINE PHOSPHATE
     Indication: Bone marrow conditioning regimen
     Dosage: 42.3 MG, QD
     Route: 042
     Dates: start: 20220415, end: 20220417
  3. CYCLOPHOSPHAMIDE [Suspect]
     Active Substance: CYCLOPHOSPHAMIDE
     Indication: Bone marrow conditioning regimen
     Dosage: 1500 MG, ONCE
     Route: 042
     Dates: start: 20220417, end: 20220417
  4. MESNA [Suspect]
     Active Substance: MESNA
     Indication: Prophylaxis
     Dosage: 913 MG, ONCE
     Route: 042
     Dates: start: 20220417, end: 20220417
  5. THYMOCYTE IMMUNE GLOBULIN NOS [Suspect]
     Active Substance: THYMOCYTE IMMUNE GLOBULIN NOS
     Indication: Cytokine release syndrome
     Dosage: UNK
     Route: 065
     Dates: start: 20220428, end: 20220429

REACTIONS (22)
  - Sepsis [Fatal]
  - Immune effector cell-associated neurotoxicity syndrome [Not Recovered/Not Resolved]
  - Brain oedema [Recovering/Resolving]
  - Cytokine release syndrome [Not Recovered/Not Resolved]
  - Haemophagocytic lymphohistiocytosis [Unknown]
  - Mucosal inflammation [Not Recovered/Not Resolved]
  - Hypopnoea [Recovered/Resolved]
  - Cytopenia [Unknown]
  - Hypertriglyceridaemia [Unknown]
  - Hypofibrinogenaemia [Unknown]
  - Natural killer cell count decreased [Unknown]
  - Serum ferritin increased [Unknown]
  - Interleukin-2 receptor increased [Unknown]
  - Tachycardia [Not Recovered/Not Resolved]
  - Hypotension [Not Recovered/Not Resolved]
  - Pyrexia [Not Recovered/Not Resolved]
  - Hypoxia [Not Recovered/Not Resolved]
  - Arthralgia [Not Recovered/Not Resolved]
  - Aphasia [Not Recovered/Not Resolved]
  - Confusional state [Not Recovered/Not Resolved]
  - Seizure [Recovered/Resolved]
  - Pyrexia [Unknown]

NARRATIVE: CASE EVENT DATE: 20220425
